FAERS Safety Report 8049986 (Version 2)
Quarter: 2012Q4

REPORT INFORMATION
  Report Type: 
  Country: MX (occurrence: MX)
  Receive Date: 20110722
  Receipt Date: 20120908
  Transmission Date: 20130627
  Serious: Yes (Hospitalization)
  Sender: FDA-Public Use
  Company Number: PHHY2011MX62572

PATIENT
  Age: 57 Year
  Sex: Female

DRUGS (2)
  1. ACLASTA [Suspect]
     Indication: OSTEOPOROSIS
     Dosage: 5 mg / 100 ml
     Route: 042
     Dates: start: 20110404
  2. ALTRULINE [Concomitant]
     Indication: DEPRESSION
     Dosage: 0.5 tablets

REACTIONS (2)
  - Fall [Recovering/Resolving]
  - Femur fracture [Recovering/Resolving]
